FAERS Safety Report 13416279 (Version 11)
Quarter: 2018Q1

REPORT INFORMATION
  Report Type: Report from Study
  Country: CA (occurrence: CA)
  Receive Date: 20170407
  Receipt Date: 20180118
  Transmission Date: 20180508
  Serious: Yes (Other)
  Sender: FDA-Public Use
  Company Number: CA-SA-2017SA013987

PATIENT
  Age: 25 Year
  Sex: Female
  Weight: 55 kg

DRUGS (1)
  1. LEMTRADA [Suspect]
     Active Substance: ALEMTUZUMAB
     Indication: RELAPSING-REMITTING MULTIPLE SCLEROSIS
     Route: 041
     Dates: start: 20170109, end: 20170113

REACTIONS (23)
  - Urine ketone body present [Recovered/Resolved]
  - Platelet count increased [Recovered/Resolved]
  - Protein urine present [Recovered/Resolved]
  - Leukocyturia [Recovered/Resolved]
  - Condition aggravated [Not Recovered/Not Resolved]
  - Chest pain [Recovering/Resolving]
  - Eosinophil count increased [Recovered/Resolved]
  - Haemoglobin urine present [Recovered/Resolved]
  - Rash [Not Recovered/Not Resolved]
  - Red blood cells urine positive [Recovered/Resolved]
  - Urinary sediment present [Recovered/Resolved]
  - Lymphocyte count decreased [Not Recovered/Not Resolved]
  - Blood thyroid stimulating hormone decreased [Not Recovered/Not Resolved]
  - Urine abnormality [Recovered/Resolved]
  - pH urine increased [Recovered/Resolved]
  - Fungal test positive [Unknown]
  - Pneumonia [Recovering/Resolving]
  - Pyrexia [Recovered/Resolved]
  - Mean platelet volume decreased [Not Recovered/Not Resolved]
  - White blood cell count decreased [Recovered/Resolved]
  - Painful respiration [Recovering/Resolving]
  - Neutropenia [Recovered/Resolved]
  - Skin papilloma [Not Recovered/Not Resolved]

NARRATIVE: CASE EVENT DATE: 2017
